FAERS Safety Report 11045822 (Version 1)
Quarter: 2015Q2

REPORT INFORMATION
  Report Type: Report from Study
  Country: US (occurrence: US)
  Receive Date: 20150417
  Receipt Date: 20150417
  Transmission Date: 20150821
  Serious: Yes (Other)
  Sender: FDA-Public Use
  Company Number: US-PFIZER INC-2015124449

PATIENT
  Age: 61 Year
  Sex: Male
  Weight: 92 kg

DRUGS (33)
  1. SOLU-MEDROL [Suspect]
     Active Substance: METHYLPREDNISOLONE SODIUM SUCCINATE
     Dosage: 125 MG, PER PROTOCOL TAPER
     Route: 042
     Dates: start: 20130920, end: 20130920
  2. SOLU-MEDROL [Suspect]
     Active Substance: METHYLPREDNISOLONE SODIUM SUCCINATE
     Dosage: 60 MG, PER PROTOCOL TAPER
     Route: 042
     Dates: start: 20130921, end: 20130921
  3. PREDNISONE. [Suspect]
     Active Substance: PREDNISONE
     Dosage: 20 MG, TAPER PER PROTOCOL
     Route: 048
     Dates: start: 20131003, end: 20131009
  4. PREDNISONE. [Suspect]
     Active Substance: PREDNISONE
     Dosage: 5 MG, ONCE DAILY, TAPER PER PROTOCOL
     Route: 048
     Dates: start: 20131024
  5. CELLCEPT [Suspect]
     Active Substance: MYCOPHENOLATE MOFETIL\MYCOPHENOLATE MOFETIL HYDROCHLORIDE
     Dosage: 750 MG, DAILY (500 MG QAM, 250 MG QPM)
     Route: 048
     Dates: start: 20140627, end: 20140627
  6. CELLCEPT [Suspect]
     Active Substance: MYCOPHENOLATE MOFETIL\MYCOPHENOLATE MOFETIL HYDROCHLORIDE
     Dosage: 1000 MG, MAINTENANCE
     Route: 042
     Dates: start: 20130918, end: 20130918
  7. CELLCEPT [Suspect]
     Active Substance: MYCOPHENOLATE MOFETIL\MYCOPHENOLATE MOFETIL HYDROCHLORIDE
     Dosage: 2000 MG, MAINTENANCE
     Route: 048
     Dates: start: 20130921, end: 20131217
  8. CELLCEPT [Suspect]
     Active Substance: MYCOPHENOLATE MOFETIL\MYCOPHENOLATE MOFETIL HYDROCHLORIDE
     Dosage: 1500 MG, MAINTENANCE
     Route: 048
     Dates: start: 20131219, end: 20140217
  9. PREDNISONE. [Suspect]
     Active Substance: PREDNISONE
     Indication: STEROID THERAPY
     Dosage: 30 MG, TAPER PER PROTOCOL
     Route: 048
     Dates: start: 20130923, end: 20130925
  10. CELLCEPT [Suspect]
     Active Substance: MYCOPHENOLATE MOFETIL\MYCOPHENOLATE MOFETIL HYDROCHLORIDE
     Dosage: 500 MG, TWICE DAILY
     Route: 048
     Dates: start: 20140619, end: 20140626
  11. CELLCEPT [Suspect]
     Active Substance: MYCOPHENOLATE MOFETIL\MYCOPHENOLATE MOFETIL HYDROCHLORIDE
     Dosage: 1750 MG, MAINTENANCE
     Route: 048
     Dates: start: 20140218, end: 20140218
  12. BASILIXIMAB [Suspect]
     Active Substance: BASILIXIMAB
     Indication: RENAL TRANSPLANT
     Dosage: 20 MG, TWO DOSES
     Route: 042
     Dates: start: 20130918, end: 20130922
  13. PREDNISONE. [Suspect]
     Active Substance: PREDNISONE
     Dosage: 10 MG, TAPER PER PROTOCOL
     Route: 048
     Dates: start: 20131017, end: 20131023
  14. SOLU-MEDROL [Suspect]
     Active Substance: METHYLPREDNISOLONE SODIUM SUCCINATE
     Dosage: 250 MG PER PROTOCOL TAPER
     Route: 042
     Dates: start: 20130919, end: 20130919
  15. SOLU-MEDROL [Suspect]
     Active Substance: METHYLPREDNISOLONE SODIUM SUCCINATE
     Dosage: 30 MG, PER PROTOCOL TAPER
     Route: 042
     Dates: start: 20130922, end: 20130922
  16. CELLCEPT [Suspect]
     Active Substance: MYCOPHENOLATE MOFETIL\MYCOPHENOLATE MOFETIL HYDROCHLORIDE
     Dosage: 1000 MG, MAINTENANCE
     Route: 048
     Dates: start: 20130920, end: 20130920
  17. LANTUS [Concomitant]
     Active Substance: INSULIN GLARGINE
     Dosage: UNK
     Dates: start: 20131017
  18. SOLU-MEDROL [Suspect]
     Active Substance: METHYLPREDNISOLONE SODIUM SUCCINATE
     Indication: RENAL TRANSPLANT
     Dosage: 500 MG PER PROTOCOL TAPER
     Route: 042
     Dates: start: 20130918, end: 20130918
  19. CELLCEPT [Suspect]
     Active Substance: MYCOPHENOLATE MOFETIL\MYCOPHENOLATE MOFETIL HYDROCHLORIDE
     Dosage: 1750 MG, MAINTENANCE
     Route: 048
     Dates: start: 20131218, end: 20131218
  20. PREDNISONE. [Suspect]
     Active Substance: PREDNISONE
     Dosage: 15 MG, TAPER PER PROTOCOL
     Route: 048
     Dates: start: 20131010, end: 20131016
  21. CELLCEPT [Suspect]
     Active Substance: MYCOPHENOLATE MOFETIL\MYCOPHENOLATE MOFETIL HYDROCHLORIDE
     Dosage: 1000 MG, MAINTENANCE
     Route: 042
     Dates: start: 20130920, end: 20130920
  22. METOPROLOL [Concomitant]
     Active Substance: METOPROLOL
     Dosage: UNK
     Dates: start: 20130926
  23. PREDNISONE. [Suspect]
     Active Substance: PREDNISONE
     Dosage: 25 MG, TAPER PER PROTOCOL
     Route: 048
     Dates: start: 20130926, end: 20131002
  24. PEPCID [Concomitant]
     Active Substance: FAMOTIDINE
     Dosage: UNK
     Dates: start: 20130924
  25. HUMALOG [Concomitant]
     Active Substance: INSULIN LISPRO
     Dosage: UNK
     Dates: start: 20131007
  26. PROCARDIA [Concomitant]
     Active Substance: NIFEDIPINE
     Dosage: UNK
     Dates: start: 20140219
  27. ASKP1240 [Suspect]
     Active Substance: INVESTIGATIONAL PRODUCT
     Indication: RENAL TRANSPLANT
     Dosage: 200 MG PER PROTOCOL; INJECTION
     Route: 042
     Dates: start: 20130918, end: 20140617
  28. CELLCEPT [Suspect]
     Active Substance: MYCOPHENOLATE MOFETIL\MYCOPHENOLATE MOFETIL HYDROCHLORIDE
     Indication: RENAL TRANSPLANT
     Dosage: 1000 MG, TWICE DAILY
     Route: 048
     Dates: start: 20140318, end: 20140606
  29. CELLCEPT [Suspect]
     Active Substance: MYCOPHENOLATE MOFETIL\MYCOPHENOLATE MOFETIL HYDROCHLORIDE
     Dosage: 750 MG, TWICE DAILY
     Route: 048
     Dates: start: 20140607, end: 20140618
  30. CELLCEPT [Suspect]
     Active Substance: MYCOPHENOLATE MOFETIL\MYCOPHENOLATE MOFETIL HYDROCHLORIDE
     Dosage: 250 MG, TWICE DAILY
     Route: 048
     Dates: start: 20140628, end: 20140720
  31. CELLCEPT [Suspect]
     Active Substance: MYCOPHENOLATE MOFETIL\MYCOPHENOLATE MOFETIL HYDROCHLORIDE
     Dosage: 2000 MG, MAINTENANCE
     Route: 042
     Dates: start: 20130919, end: 20130919
  32. CELLCEPT [Suspect]
     Active Substance: MYCOPHENOLATE MOFETIL\MYCOPHENOLATE MOFETIL HYDROCHLORIDE
     Dosage: 2000 MG, MAINTENANCE
     Route: 048
     Dates: start: 20140219, end: 20140317
  33. CRESTOR [Concomitant]
     Active Substance: ROSUVASTATIN CALCIUM
     Dosage: UNK
     Dates: start: 20131009

REACTIONS (2)
  - Polyomavirus-associated nephropathy [Not Recovered/Not Resolved]
  - BK virus infection [Recovering/Resolving]

NARRATIVE: CASE EVENT DATE: 20140515
